FAERS Safety Report 5348997-X (Version None)
Quarter: 2007Q2

REPORT INFORMATION
  Report Type: 
  Country: None (occurrence: None)
  Receive Date: 20070516
  Receipt Date: 20061010
  Transmission Date: 20071010
  Serious: Yes (Hospitalization)
  Sender: FDA-Public Use
  Company Number: WAES 0610USA07135

PATIENT
  Age: 38 Year
  Sex: Male

DRUGS (4)
  1. CRIXIVAN [Suspect]
     Indication: HIV INFECTION
     Dosage: 80 MG/TID/PO
     Route: 048
     Dates: start: 20040903
  2. BACTRIM DS [Concomitant]
  3. COMBIVIR [Concomitant]
  4. MULTI-VITAMINS [Concomitant]

REACTIONS (2)
  - ADVERSE EVENT [None]
  - BLOOD BILIRUBIN INCREASED [None]
